FAERS Safety Report 4687118-3 (Version None)
Quarter: 2005Q2

REPORT INFORMATION
  Report Type: 
  Country: None (occurrence: None)
  Receive Date: 20050608
  Receipt Date: 20050523
  Transmission Date: 20051028
  Serious: Yes (Other)
  Sender: FDA-Public Use
  Company Number: 2005078502

PATIENT
  Age: 66 Year
  Sex: Male

DRUGS (4)
  1. VIAGRA [Suspect]
     Indication: ERECTILE DYSFUNCTION
     Dosage: 50 MG (50 MG) ORAL
     Route: 048
     Dates: start: 20040101
  2. NORVASC [Concomitant]
  3. PRAVACHOL [Concomitant]
  4. TAMSULOSIN HCL [Concomitant]

REACTIONS (3)
  - BLADDER CANCER [None]
  - DRUG EFFECT DECREASED [None]
  - PROSTATIC SPECIFIC ANTIGEN INCREASED [None]
